FAERS Safety Report 10717853 (Version 4)
Quarter: 2015Q1

REPORT INFORMATION
  Report Type: Spontaneous
  Country: US (occurrence: US)
  Receive Date: 20150116
  Receipt Date: 20150227
  Transmission Date: 20150721
  Serious: Yes (Other)
  Sender: FDA-Public Use
  Company Number: US-ALLERGAN-1426340US

PATIENT
  Age: 78 Year
  Sex: Male

DRUGS (9)
  1. PRANDIN [Concomitant]
     Active Substance: REPAGLINIDE
     Dosage: UNK UNK, BID
     Route: 048
  2. RESTASIS [Suspect]
     Active Substance: CYCLOSPORINE
     Indication: DRY EYE
     Dosage: 2 GTT, BID
     Route: 047
     Dates: start: 201406, end: 2014
  3. FML FORTE [Suspect]
     Active Substance: FLUOROMETHOLONE
     Indication: DRY EYE
     Dosage: 2 GTT, BID
     Route: 047
     Dates: start: 201405
  4. ALTACE [Concomitant]
     Active Substance: RAMIPRIL
     Dosage: UNK
  5. TERAZOSIN [Concomitant]
     Active Substance: TERAZOSIN\TERAZOSIN HYDROCHLORIDE
     Dosage: UNK
  6. RESTASIS [Suspect]
     Active Substance: CYCLOSPORINE
     Dosage: UNK
     Route: 047
  7. COREG [Concomitant]
     Active Substance: CARVEDILOL
     Dosage: UNK
  8. LIPITOR [Concomitant]
     Active Substance: ATORVASTATIN CALCIUM
     Dosage: UNK
  9. ZETIA [Concomitant]
     Active Substance: EZETIMIBE
     Dosage: UNK

REACTIONS (3)
  - Conjunctival scar [Unknown]
  - Conjunctivitis [Unknown]
  - Eye irritation [Unknown]

NARRATIVE: CASE EVENT DATE: 201411
